FAERS Safety Report 19032581 (Version 1)
Quarter: 2021Q1

REPORT INFORMATION
  Report Type: Report from Study
  Country: US (occurrence: US)
  Receive Date: 20210319
  Receipt Date: 20210319
  Transmission Date: 20210420
  Serious: Yes (Hospitalization)
  Sender: FDA-Public Use
  Company Number: US-JNJFOC-20210318124

PATIENT
  Age: 67 Year
  Sex: Male
  Weight: 54.5 kg

DRUGS (5)
  1. OFEV [Concomitant]
     Active Substance: NINTEDANIB
  2. TADALAFIL. [Concomitant]
     Active Substance: TADALAFIL
  3. XARELTO [Concomitant]
     Active Substance: RIVAROXABAN
  4. MACITENTAN [Suspect]
     Active Substance: MACITENTAN
     Indication: PULMONARY ARTERIAL HYPERTENSION
     Route: 048
  5. TYVASO [Concomitant]
     Active Substance: TREPROSTINIL

REACTIONS (1)
  - Dizziness [Unknown]

NARRATIVE: CASE EVENT DATE: 20210308
